FAERS Safety Report 17087867 (Version 1)
Quarter: 2019Q4

REPORT INFORMATION
  Report Type: Spontaneous
  Country: NL (occurrence: NL)
  Receive Date: 20191128
  Receipt Date: 20191128
  Transmission Date: 20200122
  Serious: Yes (Other)
  Sender: FDA-Public Use
  Company Number: NL-BAUSCH-BL-2019-062906

PATIENT
  Age: 11 Year
  Sex: Female
  Weight: 35 kg

DRUGS (1)
  1. ATROPINE. [Suspect]
     Active Substance: ATROPINE
     Indication: MYOPIA
     Route: 047
     Dates: start: 201903

REACTIONS (3)
  - Conjunctivitis [Recovered/Resolved]
  - Drug hypersensitivity [Recovering/Resolving]
  - Scleritis [Recovered/Resolved]

NARRATIVE: CASE EVENT DATE: 201903
